FAERS Safety Report 10416655 (Version 2)
Quarter: 2014Q3

REPORT INFORMATION
  Report Type: Spontaneous
  Country: JP (occurrence: JP)
  Receive Date: 20140828
  Receipt Date: 20140925
  Transmission Date: 20150326
  Serious: Yes (Hospitalization)
  Sender: FDA-Public Use
  Company Number: PHHY2014JP106371

PATIENT
  Age: 78 Year
  Sex: Male

DRUGS (5)
  1. AMLODIPINE BESYLATE SANDOZ [Suspect]
     Active Substance: AMLODIPINE BESYLATE
     Indication: HYPERTENSION
     Dosage: 5 MG, UNK
     Route: 048
  2. TRAZENTA [Suspect]
     Active Substance: LINAGLIPTIN
     Dosage: 5 MG, UNK
     Route: 048
     Dates: end: 20140820
  3. ZETIA [Suspect]
     Active Substance: EZETIMIBE
     Dosage: 10 MG, UNK
     Route: 048
     Dates: end: 20140820
  4. NEXIAM [Suspect]
     Active Substance: ESOMEPRAZOLE
     Dosage: 10 MG, UNK
     Route: 048
  5. PLAVIX [Suspect]
     Active Substance: CLOPIDOGREL BISULFATE
     Dosage: 75 MG, UNK
     Route: 048

REACTIONS (2)
  - Cough [Not Recovered/Not Resolved]
  - Eosinophilic pneumonia [Not Recovered/Not Resolved]

NARRATIVE: CASE EVENT DATE: 201401
